FAERS Safety Report 25740105 (Version 2)
Quarter: 2025Q4

REPORT INFORMATION
  Report Type: Spontaneous
  Country: US (occurrence: US)
  Receive Date: 20250829
  Receipt Date: 20251006
  Transmission Date: 20260117
  Serious: No
  Sender: AJANTA PHARMA USA INC
  Company Number: US-AJANTA-2025AJA00113

PATIENT
  Age: 70 Year
  Weight: 209 kg

DRUGS (1)
  1. CLONIDINE HYDROCHLORIDE [Suspect]
     Active Substance: CLONIDINE HYDROCHLORIDE
     Indication: Hypertension
     Dates: start: 20250519, end: 20250617

REACTIONS (9)
  - Vision blurred [Recovering/Resolving]
  - Cough [Recovering/Resolving]
  - Tinnitus [Not Recovered/Not Resolved]
  - Palpitations [Not Recovered/Not Resolved]
  - Blister [Recovered/Resolved with Sequelae]
  - Musculoskeletal chest pain [Recovering/Resolving]
  - Swollen tongue [Recovered/Resolved]
  - Headache [Recovering/Resolving]
  - Drug ineffective for unapproved indication [Unknown]

NARRATIVE: CASE EVENT DATE: 20250101
